FAERS Safety Report 14295584 (Version 4)
Quarter: 2018Q4

REPORT INFORMATION
  Report Type: Spontaneous
  Country: US (occurrence: US)
  Receive Date: 20171218
  Receipt Date: 20181106
  Transmission Date: 20190204
  Serious: No
  Sender: FDA-Public Use
  Company Number: US-PFIZER INC-2017538774

PATIENT
  Age: 58 Year
  Sex: Female

DRUGS (4)
  1. POLYMYXIN B. [Suspect]
     Active Substance: POLYMYXIN B
     Dosage: UNK
  2. BACITRACIN. [Suspect]
     Active Substance: BACITRACIN
     Dosage: UNK
  3. NEOSPORIN [Suspect]
     Active Substance: BACITRACIN ZINC\NEOMYCIN SULFATE\POLYMYXIN B SULFATE
     Dosage: UNK
  4. NEOMYCIN. [Suspect]
     Active Substance: NEOMYCIN
     Dosage: UNK

REACTIONS (1)
  - Drug hypersensitivity [Unknown]
